FAERS Safety Report 16337414 (Version 1)
Quarter: 2019Q2

REPORT INFORMATION
  Report Type: Spontaneous
  Country: US (occurrence: US)
  Receive Date: 20190521
  Receipt Date: 20190521
  Transmission Date: 20190711
  Serious: No
  Sender: FDA-Public Use
  Company Number: US-PFIZER INC-2019212380

PATIENT
  Age: 81 Year
  Sex: Female

DRUGS (1)
  1. TOFACITINIB CITRATE [Suspect]
     Active Substance: TOFACITINIB CITRATE
     Dosage: 11 MG, UNK
     Dates: start: 201903

REACTIONS (5)
  - Breath odour [Unknown]
  - Urine odour abnormal [Unknown]
  - Malaise [Unknown]
  - Joint swelling [Unknown]
  - Pain [Unknown]
